FAERS Safety Report 18185617 (Version 2)
Quarter: 2020Q3

REPORT INFORMATION
  Report Type: Spontaneous
  Country: US (occurrence: US)
  Receive Date: 20200824
  Receipt Date: 20200825
  Transmission Date: 20201103
  Serious: Yes (Life-Threatening, Hospitalization)
  Sender: FDA-Public Use
  Company Number: US-ASTRAZENECA-2020SF04789

PATIENT

DRUGS (1)
  1. LOKELMA [Suspect]
     Active Substance: SODIUM ZIRCONIUM CYCLOSILICATE
     Indication: HYPERKALAEMIA
     Route: 048
     Dates: start: 20200812, end: 20200813

REACTIONS (4)
  - Abdominal mass [Recovered/Resolved]
  - Constipation [Unknown]
  - Gastrointestinal motility disorder [Unknown]
  - Product residue present [Unknown]

NARRATIVE: CASE EVENT DATE: 20200813
